FAERS Safety Report 7830143-1 (Version None)
Quarter: 2011Q4

REPORT INFORMATION
  Report Type: 
  Country: None (occurrence: None)
  Receive Date: 20111021
  Receipt Date: 20111018
  Transmission Date: 20120403
  Serious: Yes (Hospitalization)
  Sender: FDA-Public Use
  Company Number: US-B.I. PHARMACEUTICALS,INC./RIDGEFIELD-2011-BP-22329BP

PATIENT
  Age: 73 Year
  Weight: 45.35 kg

DRUGS (5)
  1. METFORMIN HCL [Concomitant]
     Dosage: 2000 MG
     Route: 048
  2. COUMADIN [Concomitant]
     Route: 048
  3. LISINOPRIL [Concomitant]
     Dosage: 5 MG
     Route: 048
  4. PRADAXA [Suspect]
     Dosage: 300 MG
     Route: 048
  5. METOPROLOL TARTRATE [Concomitant]
     Dosage: 50 MG
     Route: 048

REACTIONS (1)
  - CARDIAC FAILURE CONGESTIVE [None]
